FAERS Safety Report 11194168 (Version 1)
Quarter: 2015Q2

REPORT INFORMATION
  Report Type: Spontaneous
  Country: US (occurrence: US)
  Receive Date: 20150616
  Receipt Date: 20150616
  Transmission Date: 20150821
  Serious: No
  Sender: FDA-Public Use
  Company Number: US-LPDUSPRD-20150111

PATIENT
  Age: 79 Year
  Sex: Female

DRUGS (3)
  1. CYANOCOBALAMIN INJECTION, USP (0031-25) [Suspect]
     Active Substance: CYANOCOBALAMIN
     Dosage: DOSE NOT PROVIDED
     Route: 051
     Dates: start: 20150217, end: 20150217
  2. OMEGA 3 SUPPLEMENT [Concomitant]
     Dosage: DAILY, DOSE NOT PROVIDED
     Route: 048
  3. VITAMIN E SUPPLEMENT [Concomitant]
     Dosage: DAILY, DOSE NOT PROVIDED
     Route: 048

REACTIONS (3)
  - Headache [Recovered/Resolved]
  - Nausea [Recovered/Resolved]
  - Diarrhoea [Recovered/Resolved]

NARRATIVE: CASE EVENT DATE: 20150217
